FAERS Safety Report 5227628-3 (Version None)
Quarter: 2007Q1

REPORT INFORMATION
  Report Type: 
  Country: None (occurrence: None)
  Receive Date: 20070202
  Receipt Date: 20070122
  Transmission Date: 20070707
  Serious: Yes (Other)
  Sender: FDA-Public Use
  Company Number: US-NOVOPROD-256487

PATIENT
  Sex: Female
  Weight: 56.689 kg

DRUGS (18)
  1. ACTIVELLA [Suspect]
     Indication: MENOPAUSAL SYMPTOMS
     Dosage: UNKNOWN
     Dates: start: 20030213
  2. PREMPRO [Suspect]
     Indication: MENOPAUSAL SYMPTOMS
     Dosage: UNKNOWN
     Dates: start: 19970707
  3. ORTHO-EST [Suspect]
     Indication: MENOPAUSAL SYMPTOMS
     Dosage: UNKNOWN
     Dates: start: 20020517
  4. PROMETRIUM [Suspect]
     Indication: MENOPAUSAL SYMPTOMS
     Dosage: UNKNOWN
     Dates: start: 20020517
  5. ESTROPIPATE [Suspect]
     Indication: MENOPAUSAL SYMPTOMS
     Dosage: UNKNOWN
     Dates: start: 20020530
  6. MEDROXYPROGESTERONE [Suspect]
     Indication: MENOPAUSAL SYMPTOMS
     Dosage: UNKNOWN
     Dates: start: 20030122
  7. PREMARIN [Suspect]
     Indication: MENOPAUSAL SYMPTOMS
     Dates: start: 20030218
  8. FOSAMAX [Concomitant]
     Indication: PROPHYLAXIS
     Dates: start: 20040101
  9. FEMARA [Concomitant]
     Indication: BLOOD OESTROGEN
     Dates: start: 20040101
  10. AMITRIPTYLINE HCL [Concomitant]
     Indication: FIBROMYALGIA
     Dosage: UNK, PRN
     Dates: start: 19990101
  11. AMITRIPTYLINE HCL [Concomitant]
     Indication: INSOMNIA
  12. FIORINAL                           /00090401/ [Concomitant]
     Indication: HEADACHE
     Dosage: UNK, PRN
     Dates: start: 19980101
  13. IMITREX                            /01044801/ [Concomitant]
     Indication: HEADACHE
     Dates: start: 20010101, end: 20020101
  14. CYCLOBENZAPRINE HCL [Concomitant]
     Indication: MYALGIA
     Dates: start: 19990101, end: 20030101
  15. CYCLOBENZAPRINE HCL [Concomitant]
     Indication: TEMPOROMANDIBULAR JOINT SYNDROME
  16. CARISOPRODOL [Concomitant]
     Indication: MYALGIA
     Dates: start: 19980101, end: 19990101
  17. CARISOPRODOL [Concomitant]
     Indication: TEMPOROMANDIBULAR JOINT SYNDROME
  18. ASPIRIN [Concomitant]
     Indication: ANTICOAGULANT THERAPY
     Dates: start: 20060101

REACTIONS (1)
  - BREAST CANCER METASTATIC [None]
